FAERS Safety Report 11612114 (Version 1)
Quarter: 2015Q4

REPORT INFORMATION
  Report Type: Spontaneous
  Country: SE (occurrence: SE)
  Receive Date: 20151008
  Receipt Date: 20151008
  Transmission Date: 20160304
  Serious: Yes (Other)
  Sender: FDA-Public Use
  Company Number: SE-TEVA-599595ISR

PATIENT
  Age: 80 Year
  Sex: Male

DRUGS (1)
  1. CLOPIDOGREL [Suspect]
     Active Substance: CLOPIDOGREL BISULFATE
     Route: 048

REACTIONS (4)
  - Cough [Recovered/Resolved]
  - Dyspnoea [Recovered/Resolved]
  - Back pain [Recovered/Resolved]
  - Abdominal discomfort [Recovered/Resolved]
